FAERS Safety Report 8604137-2 (Version None)
Quarter: 2012Q3

REPORT INFORMATION
  Report Type: 
  Country: None (occurrence: None)
  Receive Date: 20120806
  Receipt Date: 20120726
  Transmission Date: 20120928
  Serious: Yes (Death)
  Sender: FDA-Public Use
  Company Number: DKLU1078054

PATIENT
  Age: 24 Month
  Sex: Male

DRUGS (8)
  1. IFOSFAMIDE [Concomitant]
  2. COSMEGEN [Suspect]
     Indication: CHEMOTHERAPY
     Dosage: 1.5 MG/M2 MILLIGRAM(S)/SQ.METER, 1 IN 1 D
  3. ETOPOSIDE [Concomitant]
  4. DOXORUBICIN HCL [Suspect]
     Indication: CHEMOTHERAPY
     Dosage: 37.5 M/M2 MILLIGRAM(S)/SQ.1 IN 1 D
  5. CYCLOPHOSPHAMIDE [Concomitant]
  6. THERAPEUTIC RADIOPHARMACEUTICALS (THERAPEUTIC RADIOPHARMACEUTICALS) [Concomitant]
  7. CISPLATIN [Suspect]
     Indication: CHEMOTHERAPY
     Dosage: 75 MG/M2 MILLIGRAM(S)/SQ. METER, 1 IN 1 D
  8. VINCRISTINE [Concomitant]

REACTIONS (1)
  - DEATH [None]
